FAERS Safety Report 4778946-4 (Version None)
Quarter: 2005Q3

REPORT INFORMATION
  Report Type: 
  Country: None (occurrence: None)
  Receive Date: 20050922
  Receipt Date: 20050914
  Transmission Date: 20060218
  Serious: Yes (Other)
  Sender: FDA-Public Use
  Company Number: 2005-09-0784

PATIENT
  Age: 25 Year
  Sex: Female

DRUGS (2)
  1. TEMODAL [Suspect]
     Indication: MIXED OLIGO-ASTROCYTOMA
     Dosage: SEE IMAGE
     Route: 048
  2. RADIATION THERAPY DO DOSE FORM [Suspect]
     Indication: MIXED OLIGO-ASTROCYTOMA
     Dosage: 60GY X-RAY THERAPY

REACTIONS (5)
  - LYMPHOPENIA [None]
  - MALIGNANT NEOPLASM OF THORAX [None]
  - METASTASES TO MENINGES [None]
  - NON-HODGKIN'S LYMPHOMA [None]
  - SUPERIOR VENA CAVAL OCCLUSION [None]
